FAERS Safety Report 16186607 (Version 2)
Quarter: 2019Q2

REPORT INFORMATION
  Report Type: Spontaneous
  Country: JP (occurrence: JP)
  Receive Date: 20190411
  Receipt Date: 20190604
  Transmission Date: 20190711
  Serious: Yes (Other)
  Sender: FDA-Public Use
  Company Number: JP-GUERBET-JP-20190045

PATIENT
  Age: 66 Year
  Sex: Male

DRUGS (2)
  1. LIPIODOL [Suspect]
     Active Substance: ETHIODIZED OIL
     Indication: THERAPEUTIC EMBOLISATION
     Route: 013
  2. N-BUTYL-2-CYANOACRYLATE [Concomitant]
     Active Substance: UNSPECIFIED INGREDIENT
     Indication: THERAPEUTIC EMBOLISATION
     Route: 013

REACTIONS (4)
  - Cerebellar infarction [Unknown]
  - Product use in unapproved indication [Unknown]
  - Cerebellar ataxia [Unknown]
  - Vascular procedure complication [Unknown]
